FAERS Safety Report 4815506-0 (Version None)
Quarter: 2005Q4

REPORT INFORMATION
  Report Type: 
  Country: None (occurrence: None)
  Receive Date: 20051027
  Receipt Date: 20051020
  Transmission Date: 20060501
  Serious: Yes (Death)
  Sender: FDA-Public Use
  Company Number: NL-SOLVAY-00305003424

PATIENT
  Age: 87 Year
  Sex: Male

DRUGS (2)
  1. TEVETEN [Suspect]
     Indication: HYPERTENSION
     Dosage: 600 MILLIGRAM (S) ORAL
     Route: 048
     Dates: start: 20050629, end: 20050101
  2. HCT (HYDROCHLOROTHIAZIDE) [Concomitant]

REACTIONS (1)
  - BLOOD PRESSURE SYSTOLIC INCREASED [None]
